FAERS Safety Report 11239001 (Version 1)
Quarter: 2015Q3

REPORT INFORMATION
  Report Type: Report from Study
  Country: IE (occurrence: IE)
  Receive Date: 20150706
  Receipt Date: 20150706
  Transmission Date: 20151125
  Serious: Yes (Hospitalization)
  Sender: FDA-Public Use
  Company Number: IE-AMGEN-IRLSL2015065302

PATIENT
  Age: 77 Year
  Sex: Female

DRUGS (11)
  1. CARDURA [Concomitant]
     Active Substance: DOXAZOSIN MESYLATE
  2. ASPIRIN                            /00002701/ [Concomitant]
     Active Substance: ASPIRIN
  3. DELTACORTRIL                       /00016201/ [Concomitant]
  4. CELLCEPT [Concomitant]
     Active Substance: MYCOPHENOLATE MOFETIL\MYCOPHENOLATE MOFETIL HYDROCHLORIDE
  5. ARANESP [Suspect]
     Active Substance: DARBEPOETIN ALFA
     Indication: CHRONIC KIDNEY DISEASE
     Dosage: 20 MUG, Q2WK
     Route: 058
     Dates: start: 20140331
  6. FOLIC ACID. [Concomitant]
     Active Substance: FOLIC ACID
  7. ONE ALPHA [Concomitant]
     Active Substance: ALFACALCIDOL
  8. SODIUM BICARBONATE. [Concomitant]
     Active Substance: SODIUM BICARBONATE
  9. OROVITE [Concomitant]
  10. PRAVASTATIN [Concomitant]
     Active Substance: PRAVASTATIN\PRAVASTATIN SODIUM
  11. AMLODIPINE [Concomitant]
     Active Substance: AMLODIPINE BESYLATE

REACTIONS (2)
  - Pneumonia [Recovering/Resolving]
  - Cough [Not Recovered/Not Resolved]
